FAERS Safety Report 4972914-5 (Version None)
Quarter: 2006Q2

REPORT INFORMATION
  Report Type: 
  Country: None (occurrence: None)
  Receive Date: 20060410
  Receipt Date: 20060327
  Transmission Date: 20061013
  Serious: Yes (Hospitalization)
  Sender: FDA-Public Use
  Company Number: 2006BI004665

PATIENT
  Age: 60 Year
  Sex: Female
  Weight: 79.3795 kg

DRUGS (4)
  1. AVONEX [Suspect]
     Indication: MULTIPLE SCLEROSIS
     Dosage: 30 UG; QW; IM
     Route: 030
     Dates: start: 20050919
  2. SYNTHROID [Concomitant]
  3. COZAAR [Concomitant]
  4. COREG [Concomitant]

REACTIONS (7)
  - CARDIAC FAILURE CONGESTIVE [None]
  - CARDIAC PROCEDURE COMPLICATION [None]
  - CHEST PAIN [None]
  - HYPERTENSION [None]
  - PACEMAKER COMPLICATION [None]
  - PERICARDIAL HAEMORRHAGE [None]
  - VENTRICULAR EXTRASYSTOLES [None]
